FAERS Safety Report 6401112-3 (Version None)
Quarter: 2009Q4

REPORT INFORMATION
  Report Type: 
  Country: None (occurrence: None)
  Receive Date: 20091015
  Receipt Date: 20091007
  Transmission Date: 20100525
  Serious: Yes (Other)
  Sender: FDA-Public Use
  Company Number: US-JNJFOC-20091003474

PATIENT
  Sex: Female
  Weight: 58.97 kg

DRUGS (5)
  1. DURAGESIC-100 [Suspect]
     Indication: BACK PAIN
     Dosage: NDC# 50458-036-05
     Route: 062
  2. TRICOR [Concomitant]
     Indication: BLOOD CHOLESTEROL INCREASED
     Route: 065
  3. SKELAXIN [Concomitant]
     Indication: MUSCLE RELAXANT THERAPY
     Route: 065
  4. ZOLOFT [Concomitant]
     Indication: DEPRESSION
     Route: 065
  5. TYLOX (OXYCODONE AND ACETAMINOPHEN) [Concomitant]
     Indication: BREAKTHROUGH PAIN
     Route: 065

REACTIONS (4)
  - HAEMANGIOMA [None]
  - PRURITUS [None]
  - PURPURA [None]
  - VASCULITIS [None]
